FAERS Safety Report 12020294 (Version 2)
Quarter: 2021Q2

REPORT INFORMATION
  Report Type: Spontaneous
  Country: US (occurrence: US)
  Receive Date: 20160206
  Receipt Date: 20210423
  Transmission Date: 20210716
  Serious: No
  Sender: FDA-Public Use
  Company Number: US-INVENTIA-000092

PATIENT
  Sex: Male

DRUGS (1)
  1. VENLAFAXINE HCL XR [Suspect]
     Active Substance: VENLAFAXINE HYDROCHLORIDE
     Indication: PRODUCT USED FOR UNKNOWN INDICATION
     Dates: start: 20210415

REACTIONS (4)
  - Eye swelling [Unknown]
  - Visual impairment [Unknown]
  - Headache [Unknown]
  - Disorientation [Unknown]

NARRATIVE: CASE EVENT DATE: 20210415
